FAERS Safety Report 23480854 (Version 2)
Quarter: 2024Q1

REPORT INFORMATION
  Report Type: Spontaneous
  Country: ES (occurrence: ES)
  Receive Date: 20240205
  Receipt Date: 20240213
  Transmission Date: 20240410
  Serious: Yes (Hospitalization, Other)
  Sender: FDA-Public Use
  Company Number: ES-SAMSUNG BIOEPIS-SB-2024-03615

PATIENT
  Age: 31 Year
  Sex: Male

DRUGS (2)
  1. ADALIMUMAB [Suspect]
     Active Substance: ADALIMUMAB\ISOPROPYL ALCOHOL
     Indication: Proctitis ulcerative
     Dosage: UNKNOWN
     Route: 065
  2. AZATHIOPRINE [Suspect]
     Active Substance: AZATHIOPRINE
     Indication: Proctitis ulcerative
     Dosage: UNKNOWN
     Route: 065

REACTIONS (4)
  - Epstein Barr virus positive mucocutaneous ulcer [Unknown]
  - Proctitis ulcerative [Unknown]
  - Anaemia [Unknown]
  - Off label use [Unknown]
